FAERS Safety Report 19849790 (Version 1)
Quarter: 2021Q3

REPORT INFORMATION
  Report Type: Spontaneous
  Country: NO (occurrence: NO)
  Receive Date: 20210917
  Receipt Date: 20210917
  Transmission Date: 20211014
  Serious: Yes (Hospitalization, Other)
  Sender: FDA-Public Use
  Company Number: NO-TAKEDA-2021TUS056634

PATIENT
  Age: 29 Year
  Sex: Female

DRUGS (2)
  1. ELVANSE [Suspect]
     Active Substance: LISDEXAMFETAMINE DIMESYLATE
     Indication: ATTENTION DEFICIT HYPERACTIVITY DISORDER
     Dosage: UNK
     Route: 065
     Dates: start: 201603, end: 202007
  2. LOETTE 28 [Suspect]
     Active Substance: ETHINYL ESTRADIOL\LEVONORGESTREL
     Indication: ORAL CONTRACEPTION
     Dosage: UNK
     Route: 065
     Dates: end: 202007

REACTIONS (10)
  - Dysarthria [Not Recovered/Not Resolved]
  - Sensory disturbance [Not Recovered/Not Resolved]
  - Cerebral artery thrombosis [Recovered/Resolved with Sequelae]
  - Quadrantanopia [Not Recovered/Not Resolved]
  - Heavy menstrual bleeding [Unknown]
  - Hypokinesia [Not Recovered/Not Resolved]
  - Menstruation irregular [Unknown]
  - Cerebral infarction [Recovered/Resolved with Sequelae]
  - Dyspnoea [Unknown]
  - Polymenorrhoea [Unknown]

NARRATIVE: CASE EVENT DATE: 201909
